FAERS Safety Report 10228805 (Version 1)
Quarter: 2014Q2

REPORT INFORMATION
  Report Type: Report from Study
  Country: US (occurrence: US)
  Receive Date: 20140610
  Receipt Date: 20140610
  Transmission Date: 20141212
  Serious: Yes (Hospitalization)
  Sender: FDA-Public Use
  Company Number: US-BRISTOL-MYERS SQUIBB COMPANY-20928701

PATIENT
  Age: 74 Year
  Sex: Male
  Weight: 84.8 kg

DRUGS (1)
  1. YERVOY [Suspect]
     Indication: METASTATIC MALIGNANT MELANOMA
     Dosage: 07MAY2014
     Route: 042
     Dates: start: 20140415

REACTIONS (2)
  - Muscular weakness [Unknown]
  - Infection [Unknown]
